FAERS Safety Report 23705744 (Version 2)
Quarter: 2024Q3

REPORT INFORMATION
  Report Type: Report from Study
  Country: NL (occurrence: NL)
  Receive Date: 20240404
  Receipt Date: 20240808
  Transmission Date: 20241016
  Serious: Yes (Other)
  Sender: AMGEN
  Company Number: NL-AMGEN-NLDSL2024065146

PATIENT
  Age: 85 Year
  Sex: Female

DRUGS (1)
  1. PROLIA [Suspect]
     Active Substance: DENOSUMAB
     Indication: Osteoporosis
     Dosage: 60 MILLIGRAM/1 MILLILITER, Q6MO
     Route: 058
     Dates: start: 20231024, end: 20231024

REACTIONS (4)
  - Spinal compression fracture [Unknown]
  - Deafness [Unknown]
  - Dizziness [Unknown]
  - Therapy cessation [Unknown]

NARRATIVE: CASE EVENT DATE: 20231024
